FAERS Safety Report 7261182-X (Version None)
Quarter: 2011Q1

REPORT INFORMATION
  Report Type: 
  Country: None (occurrence: None)
  Receive Date: 20110130
  Receipt Date: 20100920
  Transmission Date: 20110831
  Serious: No
  Sender: FDA-Public Use
  Company Number: US-ABBOTT-10P-163-0671980-00

PATIENT
  Age: 58 Year
  Sex: Male

DRUGS (7)
  1. KLONOPIN [Concomitant]
     Indication: PRODUCT USED FOR UNKNOWN INDICATION
  2. HUMIRA [Suspect]
     Indication: PSORIASIS
  3. SINGULAIR [Concomitant]
     Indication: ASTHMA
  4. PAXIL [Concomitant]
     Indication: ANXIETY
  5. ATARAX [Concomitant]
     Indication: PRURITUS
     Dosage: DAILY AS NEEDED
  6. NEXIUM [Concomitant]
     Indication: GASTRIC DISORDER
  7. AMBIEN [Concomitant]
     Indication: INSOMNIA
     Dosage: AT BEDTIME

REACTIONS (3)
  - APPLICATION SITE PRURITUS [None]
  - APPLICATION SITE IRRITATION [None]
  - APPLICATION SITE ERYTHEMA [None]
